FAERS Safety Report 14296476 (Version 1)
Quarter: 2017Q4

REPORT INFORMATION
  Report Type: Spontaneous
  Country: US (occurrence: US)
  Receive Date: 20171218
  Receipt Date: 20171218
  Transmission Date: 20180321
  Serious: Yes (Other)
  Sender: FDA-Public Use
  Company Number: US-SUNOVION-2017SUN005306

PATIENT
  Age: 54 Year
  Sex: Male
  Weight: 65.76 kg

DRUGS (4)
  1. APTIOM [Suspect]
     Active Substance: ESLICARBAZEPINE ACETATE
     Dosage: 1200-1800MG, QD
     Route: 048
  2. LYRICA [Concomitant]
     Active Substance: PREGABALIN
     Dosage: UNK
  3. APTIOM [Suspect]
     Active Substance: ESLICARBAZEPINE ACETATE
     Indication: EPILEPSY
     Dosage: UNK, QD
     Route: 048
  4. TRILEPTAL [Concomitant]
     Active Substance: OXCARBAZEPINE

REACTIONS (2)
  - Stress [Unknown]
  - Seizure [Unknown]

NARRATIVE: CASE EVENT DATE: 20171210
